FAERS Safety Report 7341064-5 (Version None)
Quarter: 2011Q2

REPORT INFORMATION
  Report Type: 
  Country: None (occurrence: None)
  Receive Date: 20110309
  Receipt Date: 20110225
  Transmission Date: 20111010
  Serious: Yes (Life-Threatening)
  Sender: FDA-Public Use
  Company Number: GXKR2011NO01051

PATIENT
  Sex: Female

DRUGS (8)
  1. METFORMIN HCL [Suspect]
     Indication: TYPE 2 DIABETES MELLITUS
     Dosage: 1 G, TID
  2. ENALAPRIL MALEATE AND HYDROCHLOROTHIAZIDE [Interacting]
     Indication: HYPERTENSION
     Dosage: 1 DF, QD
     Route: 048
  3. SIMVASTATIN [Concomitant]
     Dosage: 20 MG, QD
  4. AMARYL [Concomitant]
     Indication: TYPE 2 DIABETES MELLITUS
     Dosage: 2 MG, TID
     Route: 048
  5. LASIX [Concomitant]
     Dosage: 30 MG, QD
  6. METOPROLOL [Concomitant]
     Dosage: 200 MG, QD
  7. PROBECID [Concomitant]
     Dosage: 250 MG, BID
  8. SOMAC [Concomitant]
     Dosage: 40 MG, QD

REACTIONS (3)
  - RENAL FAILURE [None]
  - DRUG INTERACTION [None]
  - LACTIC ACIDOSIS [None]
